FAERS Safety Report 23892959 (Version 1)
Quarter: 2024Q2

REPORT INFORMATION
  Report Type: Spontaneous
  Country: US (occurrence: US)
  Receive Date: 20240524
  Receipt Date: 20240524
  Transmission Date: 20240716
  Serious: No
  Sender: FDA-Public Use
  Company Number: US-APOTEX-2024AP005578

PATIENT
  Sex: Female

DRUGS (2)
  1. PAROXETINE [Suspect]
     Active Substance: PAROXETINE
     Indication: Product used for unknown indication
     Dosage: 10 MILLIGRAM
     Route: 065
  2. PAROXETINE [Suspect]
     Active Substance: PAROXETINE
     Dosage: 15 MILLIGRAM
     Route: 065

REACTIONS (6)
  - Headache [Unknown]
  - Fatigue [Unknown]
  - Crying [Unknown]
  - Impaired work ability [Unknown]
  - Decreased appetite [Unknown]
  - Nausea [Unknown]

NARRATIVE: CASE EVENT DATE: 20240101
